FAERS Safety Report 14946841 (Version 1)
Quarter: 2018Q2

REPORT INFORMATION
  Report Type: Spontaneous
  Country: US (occurrence: US)
  Receive Date: 20180529
  Receipt Date: 20180529
  Transmission Date: 20180711
  Serious: Yes (Other)
  Sender: FDA-Public Use
  Company Number: US-STALLERGENES SAS-2048575

PATIENT
  Age: 39 Year
  Sex: Female

DRUGS (12)
  1. AZELASTINE. [Concomitant]
     Active Substance: AZELASTINE HYDROCHLORIDE
  2. HYDROCODONE BITARTRATE AND ACETAMINOPHEN [Concomitant]
     Active Substance: ACETAMINOPHEN\HYDROCODONE BITARTRATE
  3. ORALAIR [Suspect]
     Active Substance: ANTHOXANTHUM ODORATUM POLLEN\DACTYLIS GLOMERATA POLLEN\LOLIUM PERENNE POLLEN\PHLEUM PRATENSE POLLEN\POA PRATENSIS POLLEN
     Indication: ASTHMA
     Route: 060
     Dates: start: 20180215, end: 201805
  4. MELOXICAM. [Concomitant]
     Active Substance: MELOXICAM
  5. TRAMADOL. [Concomitant]
     Active Substance: TRAMADOL
  6. SUMATRIPTAN. [Concomitant]
     Active Substance: SUMATRIPTAN
  7. BUTALBITAL, ACETAMINOPHEN, AND CAFFEINE [Concomitant]
     Active Substance: ACETAMINOPHEN\BUTALBITAL\CAFFEINE
  8. ASPIRIN. [Concomitant]
     Active Substance: ASPIRIN
  9. DOK [Concomitant]
     Active Substance: DOCUSATE SODIUM
  10. FLUNISOLIDE. [Concomitant]
     Active Substance: FLUNISOLIDE
  11. ONDANSETRON [Concomitant]
     Active Substance: ONDANSETRON
  12. PREDNISONE. [Concomitant]
     Active Substance: PREDNISONE

REACTIONS (4)
  - Chest pain [Unknown]
  - Pharyngeal oedema [Unknown]
  - Nausea [Unknown]
  - Off label use [Recovered/Resolved]

NARRATIVE: CASE EVENT DATE: 2018
